FAERS Safety Report 18433950 (Version 1)
Quarter: 2020Q4

REPORT INFORMATION
  Report Type: Spontaneous
  Country: NL (occurrence: NL)
  Receive Date: 20201028
  Receipt Date: 20201028
  Transmission Date: 20210114
  Serious: Yes (Life-Threatening, Hospitalization)
  Sender: FDA-Public Use
  Company Number: NL-TWI PHARMACEUTICAL, INC-2020SCTW000020

PATIENT

DRUGS (2)
  1. CYCLOBENZAPRINE HYDROCHLORIDE EXTENDED-RELEASE CAPSULES [Suspect]
     Active Substance: CYCLOBENZAPRINE HYDROCHLORIDE
     Indication: PRODUCT USED FOR UNKNOWN INDICATION
     Dosage: UNK
     Route: 048
  2. AMITRIPTYLINE [Concomitant]
     Active Substance: AMITRIPTYLINE
     Indication: PRODUCT USED FOR UNKNOWN INDICATION
     Dosage: UNK
     Route: 065

REACTIONS (9)
  - Metabolic encephalopathy [Unknown]
  - Distributive shock [Unknown]
  - Multiple organ dysfunction syndrome [Unknown]
  - Suicide attempt [Unknown]
  - Liver injury [Recovered/Resolved]
  - Rhabdomyolysis [Unknown]
  - Intentional overdose [Unknown]
  - Respiratory failure [Unknown]
  - Acute kidney injury [Recovered/Resolved]
